FAERS Safety Report 25671489 (Version 1)
Quarter: 2025Q3

REPORT INFORMATION
  Report Type: Spontaneous
  Country: JP (occurrence: JP)
  Receive Date: 20250812
  Receipt Date: 20250812
  Transmission Date: 20251021
  Serious: Yes (Other)
  Sender: AMGEN
  Company Number: JP-AMGEN-JPNSP2025158159

PATIENT

DRUGS (2)
  1. BEVACIZUMAB [Suspect]
     Active Substance: BEVACIZUMAB
     Indication: Macular oedema
  2. FARICIMAB [Concomitant]
     Active Substance: FARICIMAB
     Indication: Macular oedema

REACTIONS (3)
  - Macular oedema [Unknown]
  - Drug ineffective for unapproved indication [Unknown]
  - Off label use [Unknown]
